FAERS Safety Report 8152027-4 (Version None)
Quarter: 2012Q1

REPORT INFORMATION
  Report Type: 
  Country: None (occurrence: None)
  Receive Date: 20120214
  Receipt Date: 20120131
  Transmission Date: 20120608
  Serious: Yes (Hospitalization)
  Sender: FDA-Public Use
  Company Number: 1000028164

PATIENT
  Age: 81 Year
  Sex: Female

DRUGS (5)
  1. MICROSER (BETAHISTINE HYDROCHLORIDE) (TABLETS) [Suspect]
     Indication: VERTIGO
     Dosage: 32 MG (16 MG, 2 IN 1 D), ORAL
     Route: 048
     Dates: start: 20110901, end: 20111001
  2. LANSOPRAZOLO (LANSOPRAZOLE) (LANSOPRAZOLE) [Concomitant]
  3. ESCITALOPRAM OXALATE [Suspect]
     Indication: ANXIETY
     Dosage: 10 MG (10 MG, 1 IN 1 D), ORAL
     Route: 048
     Dates: start: 20110901
  4. SIMVASTATIN [Concomitant]
  5. LYRICA [Suspect]
     Indication: NEURALGIA
     Dosage: 150 MG (75 MG, 2 IN 1 D), ORAL
     Route: 048
     Dates: start: 20110901

REACTIONS (4)
  - PRESYNCOPE [None]
  - LOSS OF CONSCIOUSNESS [None]
  - FEELING HOT [None]
  - HYPERHIDROSIS [None]
